FAERS Safety Report 8503407-6 (Version None)
Quarter: 2012Q3

REPORT INFORMATION
  Report Type: 
  Country: None (occurrence: None)
  Receive Date: 20120702
  Receipt Date: 20120621
  Transmission Date: 20120928
  Serious: Yes (Hospitalization)
  Sender: FDA-Public Use
  Company Number: AUR-APL-2012-02738

PATIENT
  Age: 60 Year
  Sex: Female
  Weight: 76.2 kg

DRUGS (7)
  1. ACETAMINOPHEN W/ CODEINE [Concomitant]
  2. CLARITHROMYCIN [Concomitant]
  3. LANSOPRAZOLE [Concomitant]
  4. PREGABALIN [Suspect]
     Indication: PRODUCT USED FOR UNKNOWN INDICATION
     Dosage: 100 MG (50 MG,2 IN 1 D),ORAL
     Route: 048
  5. VALPROATE SODIUM [Suspect]
     Indication: EPILEPSY
     Dosage: 2 GM (1 GM,2 IN 1 D),ORAL
     Route: 048
  6. CLOBAZAM [Concomitant]
  7. LEVETIRACETAM [Suspect]
     Indication: PRODUCT USED FOR UNKNOWN INDICATION
     Dosage: 1500 MG (750 MG,2 IN 1 D),ORAL
     Route: 048

REACTIONS (3)
  - TENDERNESS [None]
  - ABDOMINAL DISTENSION [None]
  - PANCREATITIS [None]
